FAERS Safety Report 8759383 (Version 2)
Quarter: 2012Q4

REPORT INFORMATION
  Report Type: 
  Country: GB (occurrence: GB)
  Receive Date: 20120829
  Receipt Date: 20120908
  Transmission Date: 20130627
  Serious: Yes (Death, Hospitalization)
  Sender: FDA-Public Use
  Company Number: GB-B.I. PHARMACEUTICALS,INC./RIDGEFIELD-2012-UK-01127UK

PATIENT
  Sex: Male

DRUGS (9)
  1. PRADAXA [Suspect]
     Indication: ATRIAL FIBRILLATION
     Dosage: 150 (units not reported) bd
     Dates: start: 20111026
  2. PRADAXA [Suspect]
     Indication: CEREBROVASCULAR ACCIDENT
  3. SIMVASTATIN [Concomitant]
     Indication: CEREBROVASCULAR ACCIDENT
     Dosage: 40 mg
  4. EPILIM CHRONO [Concomitant]
     Indication: EPILEPSY
     Dosage: 300
     Dates: start: 201102
  5. TAMSULOSIN [Concomitant]
     Indication: BENIGN PROSTATIC HYPERPLASIA
     Dosage: 400 mg
     Route: 048
  6. TIOTROPIUM [Concomitant]
     Indication: CHRONIC OBSTRUCTIVE PULMONARY DISEASE
     Dosage: 2 puffs as needed
  7. SALBUTAMOL [Concomitant]
     Indication: CHRONIC OBSTRUCTIVE PULMONARY DISEASE
     Dosage: 2 puffs as needed
  8. SERETIDE [Concomitant]
     Indication: CHRONIC OBSTRUCTIVE PULMONARY DISEASE
     Dosage: 500 bd
  9. EPILIM [Concomitant]
     Indication: EPILEPSY
     Dosage: 260
     Dates: start: 201102

REACTIONS (1)
  - Aortic aneurysm rupture [Fatal]
